FAERS Safety Report 4296896-7 (Version None)
Quarter: 2004Q1

REPORT INFORMATION
  Report Type: 
  Country: None (occurrence: None)
  Receive Date: 20040126
  Receipt Date: 20030829
  Transmission Date: 20041129
  Serious: No
  Sender: FDA-Public Use
  Company Number: USA020718853

PATIENT
  Age: 34 Year
  Sex: Female
  Weight: 52 kg

DRUGS (2)
  1. PROZAC [Suspect]
     Indication: DEPRESSED MOOD
     Dosage: 40 MG/DAY
     Dates: start: 20010901
  2. STRATTERA [Suspect]
     Dosage: 25 MG/DAY
     Dates: start: 20030815

REACTIONS (4)
  - HEADACHE [None]
  - INSOMNIA [None]
  - SYNCOPE [None]
  - TREMOR [None]
